FAERS Safety Report 25544516 (Version 1)
Quarter: 2025Q3

REPORT INFORMATION
  Report Type: Report from Study
  Country: EU (occurrence: EU)
  Receive Date: 20250711
  Receipt Date: 20250711
  Transmission Date: 20251021
  Serious: Yes (Hospitalization)
  Sender: IPSEN BIOPHARMACEUTICALS, INC.
  Company Number: EU-SERVIER-S24007079

PATIENT
  Age: 78 Year
  Sex: Male
  Weight: 56 kg

DRUGS (10)
  1. ONIVYDE [Suspect]
     Active Substance: IRINOTECAN HYDROCHLORIDE
     Indication: Pancreatic carcinoma
     Dosage: 86 MG, D1 OF 14-DAY CYCLE
     Dates: start: 20240523, end: 20240606
  2. ONIVYDE [Suspect]
     Active Substance: IRINOTECAN HYDROCHLORIDE
     Dosage: 86 MG, D1 OF 14-DAY CYCLE
     Dates: start: 20240620
  3. OXALIPLATIN [Suspect]
     Active Substance: OXALIPLATIN
     Indication: Pancreatic carcinoma
     Dosage: 109 MG, D1 OF 14-DAY CYCLE
     Dates: start: 20240523
  4. OXALIPLATIN [Suspect]
     Active Substance: OXALIPLATIN
     Dosage: 109 MG, D1 OF 14-DAY CYCLE
     Dates: start: 20240620
  5. LEUCOVORIN [Suspect]
     Active Substance: LEUCOVORIN\LEUCOVORIN CALCIUM
     Indication: Pancreatic carcinoma
     Dosage: 690 MG, D1 OF 14-DAY CYCLE
     Dates: start: 20240523, end: 20240606
  6. LEUCOVORIN [Suspect]
     Active Substance: LEUCOVORIN\LEUCOVORIN CALCIUM
     Dosage: 690 MG, D1 OF 14-DAY CYCLE
     Dates: start: 20240620
  7. FLUOROURACIL [Suspect]
     Active Substance: FLUOROURACIL
     Indication: Pancreatic carcinoma
     Dates: start: 20240523, end: 20240606
  8. FLUOROURACIL [Suspect]
     Active Substance: FLUOROURACIL
  9. METOCLOPRAMIDE [Concomitant]
     Active Substance: METOCLOPRAMIDE
     Indication: Vomiting
     Dosage: 10 MG, TID
     Dates: start: 20240602
  10. LOPERAMIDE [Concomitant]
     Active Substance: LOPERAMIDE
     Indication: Diarrhoea
     Dates: start: 20240602, end: 20240718

REACTIONS (2)
  - Diarrhoea [Recovered/Resolved]
  - General physical health deterioration [Recovered/Resolved]

NARRATIVE: CASE EVENT DATE: 20240606
